FAERS Safety Report 7969063-0 (Version None)
Quarter: 2011Q4

REPORT INFORMATION
  Report Type: 
  Country: None (occurrence: None)
  Receive Date: 20111208
  Receipt Date: 20111125
  Transmission Date: 20120403
  Serious: Yes (Hospitalization)
  Sender: FDA-Public Use
  Company Number: 2011AP002857

PATIENT
  Age: 72 Year
  Sex: Female

DRUGS (5)
  1. ENALAPRIL MALEATE [Suspect]
     Indication: PRODUCT USED FOR UNKNOWN INDICATION
  2. DICLOFENAC SODIUM [Suspect]
     Indication: PRODUCT USED FOR UNKNOWN INDICATION
  3. METFORMIN HCL [Suspect]
     Indication: TYPE 2 DIABETES MELLITUS
     Dosage: 850 MG;Q12H
  4. METOCLOPRAMIDE [Suspect]
     Indication: PRODUCT USED FOR UNKNOWN INDICATION
  5. FUROSEMIDE [Suspect]
     Indication: PRODUCT USED FOR UNKNOWN INDICATION
     Dosage: 20 MG:OD

REACTIONS (18)
  - PAIN IN EXTREMITY [None]
  - ASTHENIA [None]
  - ELECTROCARDIOGRAM QRS COMPLEX PROLONGED [None]
  - ELECTROCARDIOGRAM P WAVE ABNORMAL [None]
  - DIARRHOEA [None]
  - DRUG LEVEL INCREASED [None]
  - VOMITING [None]
  - BLOOD SODIUM DECREASED [None]
  - LACTIC ACIDOSIS [None]
  - DRUG INTERACTION [None]
  - HAEMODIALYSIS [None]
  - HYPOVOLAEMIA [None]
  - ABDOMINAL PAIN [None]
  - TACHYPNOEA [None]
  - BLOOD GLUCOSE INCREASED [None]
  - RENAL FAILURE ACUTE [None]
  - BLOOD POTASSIUM INCREASED [None]
  - HYPOTENSION [None]
